FAERS Safety Report 5245748-4 (Version None)
Quarter: 2007Q1

REPORT INFORMATION
  Report Type: 
  Country: None (occurrence: None)
  Receive Date: 20070223
  Receipt Date: 20070221
  Transmission Date: 20070707
  Serious: Yes (Disabling, Other)
  Sender: FDA-Public Use
  Company Number: US-MERCK-0701USA05080

PATIENT
  Age: 14 Year
  Sex: Female
  Weight: 45 kg

DRUGS (6)
  1. SINGULAIR [Suspect]
     Indication: ASTHMA
     Route: 048
     Dates: start: 20070103, end: 20070131
  2. SINGULAIR [Suspect]
     Route: 048
     Dates: start: 20020101
  3. INDOCIN SR [Concomitant]
     Indication: JUVENILE ARTHRITIS
     Route: 048
     Dates: start: 20060701
  4. CORTICOSTEROIDS (UNSPECIFIED) [Concomitant]
  5. CLARINEX [Concomitant]
     Indication: RHINITIS ALLERGIC
     Route: 048
  6. PREVACID [Concomitant]
     Indication: GASTRITIS
     Route: 048
     Dates: start: 20051201

REACTIONS (4)
  - DIARRHOEA [None]
  - GASTRITIS [None]
  - JUVENILE ARTHRITIS [None]
  - RHINITIS ALLERGIC [None]
